FAERS Safety Report 10120955 (Version 1)
Quarter: 2014Q2

REPORT INFORMATION
  Report Type: Spontaneous
  Country: US (occurrence: US)
  Receive Date: 20140425
  Receipt Date: 20140425
  Transmission Date: 20141212
  Serious: Yes (Other)
  Sender: FDA-Public Use
  Company Number: US-GLAXOSMITHKLINE-A0923591A

PATIENT
  Age: 31 Year
  Sex: Female

DRUGS (3)
  1. LAMICTAL [Suspect]
     Indication: CONVULSION
     Dosage: 200MG PER DAY
     Route: 048
     Dates: start: 201103
  2. PHENOBARBITAL [Concomitant]
  3. BENADRYL [Concomitant]

REACTIONS (7)
  - Basedow^s disease [Unknown]
  - Epilepsy [Unknown]
  - Nonspecific reaction [Unknown]
  - Local swelling [Unknown]
  - Thyroid disorder [Unknown]
  - Dyspnoea [Unknown]
  - Asthma [Unknown]
